FAERS Safety Report 7483031-7 (Version None)
Quarter: 2011Q2

REPORT INFORMATION
  Report Type: 
  Country: None (occurrence: None)
  Receive Date: 20110516
  Receipt Date: 20090930
  Transmission Date: 20111010
  Serious: Yes (Death, Hospitalization, Other)
  Sender: FDA-Public Use
  Company Number: US-BAYER-200934609NA

PATIENT
  Sex: Female
  Weight: 82.993 kg

DRUGS (16)
  1. EPOGEN [Concomitant]
     Indication: ANAEMIA
     Dosage: 10,000 UNITS THREE TIMES A WEEK
     Dates: start: 20041221
  2. VANCOMYCIN [Concomitant]
     Dosage: UNK
     Dates: start: 20041214
  3. HEPARIN [Concomitant]
     Dosage: 20,000 UNITS
     Route: 042
     Dates: start: 20041210, end: 20041210
  4. CEFAZOLIN [Concomitant]
     Dosage: 1 GRAM GIVEN 1TIME / 1.5 GRAM GIVEN 3 TIMES
     Route: 042
     Dates: start: 20041210, end: 20041210
  5. TRASYLOL [Suspect]
     Indication: VENTRICULAR SEPTAL DEFECT REPAIR
     Dosage: 300 ML LOADING DOSE FOLLOWED BY 25 ML / HOUR DRIP.
     Route: 042
     Dates: start: 20041210, end: 20041210
  6. RED BLOOD CELLS, CONCENTRATED [Concomitant]
     Dosage: 3 UNITS
     Route: 042
     Dates: start: 20041210
  7. PLATELETS [Concomitant]
     Dosage: 2 UNITS
     Route: 042
     Dates: start: 20041210
  8. AMIODARONE HCL [Concomitant]
     Dosage: 5MG /ML GIVEN TWICE
     Route: 042
     Dates: start: 20041210, end: 20041210
  9. TEQUIN [Concomitant]
     Dosage: 400MG
     Route: 042
     Dates: start: 20041210, end: 20041210
  10. RED BLOOD CELLS, CONCENTRATED [Concomitant]
     Dosage: 2 UNITS
     Route: 042
     Dates: start: 20041226
  11. TRASYLOL [Suspect]
     Indication: CORONARY ARTERY BYPASS
  12. DIGOXIN [Concomitant]
     Dosage: 250MG
     Route: 042
     Dates: start: 20041210, end: 20041210
  13. ATROPINE [Concomitant]
     Dosage: 0.1 MG/ML GIVEN TWICE
     Route: 042
     Dates: start: 20041210, end: 20041210
  14. PLATELETS [Concomitant]
     Dosage: 1 UNIT
     Route: 042
     Dates: start: 20041215
  15. FRESH FROZEN PLASMA [Concomitant]
     Dosage: 3 UNITS
     Route: 042
     Dates: start: 20041210
  16. MANNITOL [Concomitant]
     Dosage: 25% GIVEN 2 TIMES
     Route: 042
     Dates: start: 20041210, end: 20041210

REACTIONS (6)
  - PAIN [None]
  - UNEVALUABLE EVENT [None]
  - RENAL FAILURE ACUTE [None]
  - RENAL INJURY [None]
  - RENAL FAILURE [None]
  - INJURY [None]
